FAERS Safety Report 25932331 (Version 1)
Quarter: 2025Q4

REPORT INFORMATION
  Report Type: Spontaneous
  Country: US (occurrence: US)
  Receive Date: 20251016
  Receipt Date: 20251016
  Transmission Date: 20260117
  Serious: No
  Sender: TEVA
  Company Number: US-TEVA-VS-3379796

PATIENT
  Age: 65 Year
  Sex: Female

DRUGS (1)
  1. LIDOCAINE [Suspect]
     Active Substance: LIDOCAINE
     Indication: Neuralgia
     Dosage: 5% 700MG/12HR
     Route: 065

REACTIONS (2)
  - Drug ineffective [Unknown]
  - Product adhesion issue [Unknown]
